FAERS Safety Report 8250974 (Version 2)
Quarter: 2012Q4

REPORT INFORMATION
  Report Type: 
  Country: US (occurrence: US)
  Receive Date: 20111117
  Receipt Date: 20121023
  Transmission Date: 20130627
  Serious: No
  Sender: FDA-Public Use
  Company Number: US-AMGEN-USASP2011006036

PATIENT
  Age: 68 Year
  Sex: Female
  Weight: 95.24 kg

DRUGS (7)
  1. ENBREL [Suspect]
     Indication: RHEUMATOID ARTHRITIS
     Dosage: 50 mg, qwk
     Dates: start: 20101207
  2. ENBREL [Suspect]
     Dosage: 50 mg, qwk
     Route: 058
     Dates: start: 20110110, end: 20110131
  3. PRAVASTATIN [Concomitant]
     Indication: BLOOD CHOLESTEROL
     Dosage: 20 mg, qd
     Route: 048
  4. FOLIC ACID [Concomitant]
     Dosage: 1 mg, qd
     Route: 048
  5. ARTHROTEC [Concomitant]
     Indication: RHEUMATOID ARTHRITIS
     Dosage: 75 mg, bid
     Route: 048
  6. MTX                                /00113801/ [Concomitant]
     Indication: RHEUMATOID ARTHRITIS
     Dosage: UNK
     Route: 048
  7. METFORMIN [Concomitant]
     Indication: DIABETES MELLITUS
     Dosage: 50 mg, bid
     Route: 048

REACTIONS (4)
  - Vomiting [Recovered/Resolved]
  - Diarrhoea [Recovered/Resolved]
  - Nausea [Recovered/Resolved]
  - Infection [Unknown]
